FAERS Safety Report 21746745 (Version 1)
Quarter: 2022Q4

REPORT INFORMATION
  Report Type: Spontaneous
  Country: US (occurrence: US)
  Receive Date: 20221219
  Receipt Date: 20221219
  Transmission Date: 20230112
  Serious: Yes (Hospitalization)
  Sender: FDA-Public Use
  Company Number: US-ADVANZ PHARMA-202212008494

PATIENT

DRUGS (2)
  1. CLONIDINE [Suspect]
     Active Substance: CLONIDINE
     Dosage: UNK, INGESTION
  2. BUSPIRONE [Suspect]
     Active Substance: BUSPIRONE HYDROCHLORIDE
     Dosage: UNK, INGESTION (CHEWING)

REACTIONS (4)
  - Mental status changes [Recovered/Resolved]
  - Gait disturbance [Recovered/Resolved]
  - Fatigue [Recovered/Resolved]
  - Accidental exposure to product by child [Unknown]
